FAERS Safety Report 7817258-9 (Version None)
Quarter: 2011Q4

REPORT INFORMATION
  Report Type: 
  Country: None (occurrence: None)
  Receive Date: 20111017
  Receipt Date: 20111007
  Transmission Date: 20120403
  Serious: Yes (Hospitalization)
  Sender: FDA-Public Use
  Company Number: JP-SANOFI-AVENTIS-2011SA039355

PATIENT
  Age: 78 Year
  Sex: Female
  Weight: 42 kg

DRUGS (12)
  1. OXALIPLATIN [Suspect]
     Indication: RECTAL CANCER
     Route: 041
     Dates: start: 20110127, end: 20110209
  2. AMLODIPINE BESYLATE [Concomitant]
     Indication: HYPERTENSION
     Route: 048
     Dates: start: 20110125
  3. OLMESARTAN MEDOXOMIL [Concomitant]
     Indication: HYPERTENSION
     Route: 048
     Dates: start: 20110125
  4. HIRUDOID [Concomitant]
     Indication: PROPHYLAXIS
     Dates: start: 20110125
  5. DEXAMETHASONE SODIUM PHOSPHATE [Concomitant]
     Route: 042
     Dates: start: 20110127, end: 20110425
  6. GRANISETRON [Concomitant]
     Route: 048
     Dates: start: 20110127, end: 20110425
  7. XELODA [Concomitant]
     Indication: LARGE INTESTINE CARCINOMA
     Route: 048
     Dates: start: 20110127, end: 20110510
  8. PIOGLITAZONE HYDROCHLORIDE [Concomitant]
     Indication: DIABETES MELLITUS
     Route: 048
     Dates: start: 20110125
  9. AMARYL [Concomitant]
     Indication: DIABETES MELLITUS
     Route: 048
     Dates: start: 20110125
  10. OXALIPLATIN [Suspect]
     Dosage: CYCLES: 2-5
     Route: 041
     Dates: start: 20110221, end: 20110425
  11. PYDOXAL [Concomitant]
     Indication: PROPHYLAXIS
     Route: 048
     Dates: start: 20110125
  12. SLOW-K [Concomitant]
     Route: 048
     Dates: start: 20110510, end: 20110518

REACTIONS (1)
  - OXYGEN SATURATION DECREASED [None]
